FAERS Safety Report 4959361-7 (Version None)
Quarter: 2006Q1

REPORT INFORMATION
  Report Type: 
  Country: None (occurrence: None)
  Receive Date: 20060201
  Receipt Date: 20051122
  Transmission Date: 20060701
  Serious: No
  Sender: FDA-Public Use
  Company Number: 2005PV004788

PATIENT
  Age: 54 Year
  Sex: Female
  Weight: 86.1834 kg

DRUGS (6)
  1. BYETTA [Suspect]
     Indication: DIABETES MELLITUS NON-INSULIN-DEPENDENT
     Dosage: 5 MCG; BID; SC
     Route: 058
     Dates: start: 20051116
  2. ACTOS [Concomitant]
  3. STARLIX [Concomitant]
  4. METFORMIN [Concomitant]
  5. ZETIA [Concomitant]
  6. FUROSEMIDE [Concomitant]

REACTIONS (7)
  - FLUID RETENTION [None]
  - INJECTION SITE HAEMORRHAGE [None]
  - INJECTION SITE NODULE [None]
  - INJECTION SITE PAIN [None]
  - NAUSEA [None]
  - SWELLING [None]
  - URINE OUTPUT DECREASED [None]
